FAERS Safety Report 12631252 (Version 2)
Quarter: 2016Q3

REPORT INFORMATION
  Report Type: Spontaneous
  Country: US (occurrence: US)
  Receive Date: 20160808
  Receipt Date: 20160808
  Transmission Date: 20161109
  Serious: No
  Sender: FDA-Public Use
  Company Number: US-BEH-2015053038

PATIENT
  Sex: Female
  Weight: 48.5 kg

DRUGS (26)
  1. HYDROXYCHLOROQUINE [Concomitant]
     Active Substance: HYDROXYCHLOROQUINE
  2. OMEPRAZOLE. [Concomitant]
     Active Substance: OMEPRAZOLE
  3. FLONASE [Concomitant]
     Active Substance: FLUTICASONE PROPIONATE
  4. ASPIRIN. [Concomitant]
     Active Substance: ASPIRIN
  5. ZANAFLEX [Concomitant]
     Active Substance: TIZANIDINE HYDROCHLORIDE
  6. PLAVIX [Concomitant]
     Active Substance: CLOPIDOGREL BISULFATE
  7. LIDOCAINE. [Concomitant]
     Active Substance: LIDOCAINE
  8. MORPHINE [Concomitant]
     Active Substance: MORPHINE
  9. VITAMIN D2 [Concomitant]
     Active Substance: ERGOCALCIFEROL
  10. EPIPEN [Concomitant]
     Active Substance: EPINEPHRINE
  11. FENTANYL. [Concomitant]
     Active Substance: FENTANYL
  12. DIPHENHYDRAMINE. [Concomitant]
     Active Substance: DIPHENHYDRAMINE
  13. PROVENTIL [Concomitant]
     Active Substance: ALBUTEROL
  14. TRAMADOL. [Concomitant]
     Active Substance: TRAMADOL
  15. ONDANSETRON [Concomitant]
     Active Substance: ONDANSETRON
  16. HIZENTRA [Suspect]
     Active Substance: HUMAN IMMUNOGLOBULIN G
     Indication: IMMUNODEFICIENCY COMMON VARIABLE
     Route: 058
  17. ALPRAZOLAM. [Concomitant]
     Active Substance: ALPRAZOLAM
  18. DURAGESIC [Concomitant]
     Active Substance: FENTANYL
  19. OXYGEN. [Concomitant]
     Active Substance: OXYGEN
  20. BREO ELLIPTA [Concomitant]
     Active Substance: FLUTICASONE FUROATE\VILANTEROL TRIFENATATE
  21. BYSTOLIC [Concomitant]
     Active Substance: NEBIVOLOL HYDROCHLORIDE
  22. ACETAMINOPHEN. [Concomitant]
     Active Substance: ACETAMINOPHEN
  23. GABAPENTIN. [Concomitant]
     Active Substance: GABAPENTIN
  24. MYCOPHENOLATE MOFETIL. [Concomitant]
     Active Substance: MYCOPHENOLATE MOFETIL
  25. CARAFATE [Concomitant]
     Active Substance: SUCRALFATE
  26. COLACE [Concomitant]
     Active Substance: DOCUSATE SODIUM

REACTIONS (3)
  - Nausea [Unknown]
  - Pyrexia [Unknown]
  - Fatigue [Unknown]
